FAERS Safety Report 25424528 (Version 1)
Quarter: 2025Q2

REPORT INFORMATION
  Report Type: Spontaneous
  Country: US (occurrence: US)
  Receive Date: 20250611
  Receipt Date: 20250611
  Transmission Date: 20250717
  Serious: No
  Sender: GLENMARK
  Company Number: US-GLENMARK PHARMACEUTICALS-2024GMK090458

PATIENT

DRUGS (2)
  1. TACROLIMUS [Suspect]
     Active Substance: TACROLIMUS
     Indication: Milia
     Dosage: UNK, BID (TWICE DAILY)
     Route: 065
  2. TACROLIMUS [Suspect]
     Active Substance: TACROLIMUS
     Indication: Eczema

REACTIONS (6)
  - Inflammation [Recovered/Resolved]
  - Milia [Unknown]
  - Condition aggravated [Unknown]
  - Eczema [Unknown]
  - Headache [Unknown]
  - Product use in unapproved indication [Unknown]
